FAERS Safety Report 17053218 (Version 3)
Quarter: 2020Q4

REPORT INFORMATION
  Report Type: Spontaneous
  Country: US (occurrence: US)
  Receive Date: 20191120
  Receipt Date: 20201020
  Transmission Date: 20210113
  Serious: No
  Sender: FDA-Public Use
  Company Number: US-PFIZER INC-2019496662

PATIENT
  Age: 75 Year
  Sex: Female
  Weight: 91 kg

DRUGS (1)
  1. XELJANZ XR [Suspect]
     Active Substance: TOFACITINIB CITRATE
     Indication: RHEUMATOID ARTHRITIS
     Dosage: 11 MG, 1X/DAY
     Route: 048
     Dates: start: 201911

REACTIONS (3)
  - Drug hypersensitivity [Unknown]
  - Confusional state [Unknown]
  - Vitiligo [Unknown]
